FAERS Safety Report 10265048 (Version 1)
Quarter: 2014Q2

REPORT INFORMATION
  Report Type: Spontaneous
  Country: US (occurrence: US)
  Receive Date: 20140627
  Receipt Date: 20140627
  Transmission Date: 20141212
  Serious: No
  Sender: FDA-Public Use
  Company Number: US-009507513-1406USA012564

PATIENT
  Sex: Female

DRUGS (2)
  1. NASONEX [Suspect]
     Indication: NASAL CONGESTION
     Dosage: 50 MICROGRAM, UNK
     Route: 045
  2. NASONEX [Suspect]
     Indication: HYPERSENSITIVITY

REACTIONS (1)
  - Drug ineffective [Unknown]
